FAERS Safety Report 9815961 (Version 2)
Quarter: 2014Q1

REPORT INFORMATION
  Report Type: Spontaneous
  Country: US (occurrence: US)
  Receive Date: 20140114
  Receipt Date: 20140117
  Transmission Date: 20141002
  Serious: Yes (Death)
  Sender: FDA-Public Use
  Company Number: US-PFIZER INC-2014006525

PATIENT
  Age: 53 Year
  Sex: Female

DRUGS (3)
  1. GABAPENTIN [Suspect]
  2. DIAZEPAM [Suspect]
  3. BUPRENORPHINE W/NALOXONE [Suspect]

REACTIONS (1)
  - Death [Fatal]
